FAERS Safety Report 6342792-0 (Version None)
Quarter: 2009Q3

REPORT INFORMATION
  Report Type: 
  Country: None (occurrence: None)
  Receive Date: 20090908
  Receipt Date: 20001110
  Transmission Date: 20100115
  Serious: No
  Sender: FDA-Public Use
  Company Number: US-ROCHE-98518

PATIENT
  Sex: Male
  Weight: 2.7 kg

DRUGS (2)
  1. OSELTAMIVIR [Suspect]
     Dates: start: 19980109, end: 19980220
  2. VITAMINS [Concomitant]
     Indication: PREGNANCY

REACTIONS (5)
  - CAESAREAN SECTION [None]
  - FOETAL HEART RATE ABNORMAL [None]
  - MATERNAL DRUGS AFFECTING FOETUS [None]
  - PREGNANCY [None]
  - UMBILICAL CORD AROUND NECK [None]
